FAERS Safety Report 16553264 (Version 2)
Quarter: 2019Q4

REPORT INFORMATION
  Report Type: Report from Study
  Country: US (occurrence: US)
  Receive Date: 20190710
  Receipt Date: 20191031
  Transmission Date: 20200122
  Serious: Yes (Death, Hospitalization)
  Sender: FDA-Public Use
  Company Number: US-TAKEDA-2019TUS042051

PATIENT
  Age: 67 Year
  Sex: Female

DRUGS (1)
  1. BORTEZOMIB. [Suspect]
     Active Substance: BORTEZOMIB
     Indication: PLASMA CELL MYELOMA
     Dosage: 1.6 MILLIGRAM, 1/WEEK
     Route: 058
     Dates: start: 201803

REACTIONS (1)
  - Death [Fatal]

NARRATIVE: CASE EVENT DATE: 20191013
